FAERS Safety Report 10789178 (Version 1)
Quarter: 2015Q1

REPORT INFORMATION
  Report Type: Spontaneous
  Country: US (occurrence: None)
  Receive Date: 20150211
  Receipt Date: 20150211
  Transmission Date: 20150721
  Serious: No
  Sender: FDA-Public Use
  Company Number: None

PATIENT
  Age: 52 Year
  Sex: Male
  Weight: 104.33 kg

DRUGS (1)
  1. POLYETHYLENE GLYCOL 3350 NF, BRE CKENDRIDGE PHARMACEUTICAL, [Suspect]
     Active Substance: POLYETHYLENE GLYCOLS
     Indication: GASTROINTESTINAL DISORDER
     Dosage: 20 DOSES AT 17 GRAMS A DOSE ON ONCE DAILY TAKEN BY MOUTH
     Route: 048
     Dates: start: 20150208, end: 20150210

REACTIONS (2)
  - Abnormal faeces [None]
  - Flatulence [None]
